FAERS Safety Report 7481270-2 (Version None)
Quarter: 2011Q2

REPORT INFORMATION
  Report Type: 
  Country: None (occurrence: None)
  Receive Date: 20110512
  Receipt Date: 20110512
  Transmission Date: 20111010
  Serious: No
  Sender: FDA-Public Use
  Company Number: None

PATIENT
  Sex: Female
  Weight: 93.6 kg

DRUGS (2)
  1. VENLAFAXINE [Suspect]
     Indication: ANXIETY
     Dosage: 150 1 DAY ORAL
     Route: 048
     Dates: start: 20110428, end: 20110430
  2. VENLAFAXINE [Suspect]
     Indication: DEPRESSION
     Dosage: 150 1 DAY ORAL
     Route: 048
     Dates: start: 20110428, end: 20110430

REACTIONS (5)
  - MALAISE [None]
  - DRUG WITHDRAWAL SYNDROME [None]
  - DEPRESSIVE SYMPTOM [None]
  - DIARRHOEA [None]
  - DIZZINESS [None]
